FAERS Safety Report 4898438-1 (Version None)
Quarter: 2006Q1

REPORT INFORMATION
  Report Type: 
  Country: None (occurrence: None)
  Receive Date: 20060130
  Receipt Date: 20060116
  Transmission Date: 20060701
  Serious: Yes (Death)
  Sender: FDA-Public Use
  Company Number: 2006009963

PATIENT
  Sex: Male

DRUGS (9)
  1. HEPARIN SODIUM [Suspect]
     Indication: HYPERTENSION
     Dates: start: 20040730, end: 20040730
  2. HEPARIN SODIUM [Suspect]
     Indication: MYOCARDIAL INFARCTION
     Dates: start: 20040730, end: 20040730
  3. ASPIRIN [Suspect]
     Indication: HYPERTENSION
     Dosage: 160 MG (160 MG, 1 IN 1 D), ORAL
     Route: 048
     Dates: end: 20040730
  4. ASPIRIN [Suspect]
     Indication: MYOCARDIAL INFARCTION
     Dosage: 160 MG (160 MG, 1 IN 1 D), ORAL
     Route: 048
     Dates: end: 20040730
  5. RETEPLASE (RETEPLASE) [Suspect]
     Indication: HYPERTENSION
     Dates: start: 20040730, end: 20040730
  6. RETEPLASE (RETEPLASE) [Suspect]
     Indication: MYOCARDIAL INFARCTION
     Dates: start: 20040730, end: 20040730
  7. BETOLVEX (CYANOCOBALAMIN-TANNIN COMPLEX) [Concomitant]
  8. ZOCORD (SIMVASTATIN) [Concomitant]
  9. ISOSORBIDE MONONITRATE [Concomitant]

REACTIONS (4)
  - BLOOD PRESSURE INCREASED [None]
  - CEREBRAL HAEMORRHAGE [None]
  - HEART RATE INCREASED [None]
  - MOUTH HAEMORRHAGE [None]
